FAERS Safety Report 7406654-X (Version None)
Quarter: 2011Q2

REPORT INFORMATION
  Report Type: 
  Country: None (occurrence: None)
  Receive Date: 20110406
  Receipt Date: 20110406
  Transmission Date: 20111010
  Serious: Yes (Life-Threatening)
  Sender: FDA-Public Use
  Company Number: None

PATIENT
  Sex: Female

DRUGS (7)
  1. COMPAZINE [Concomitant]
  2. EVEROLIMUS (RAD001) [Suspect]
     Indication: COLORECTAL CANCER
     Dosage: 10.0 MG PO QD
     Route: 048
     Dates: start: 20110318, end: 20110404
  3. TIVOZANIB (AV-951) [Suspect]
     Indication: COLORECTAL CANCER
     Dosage: 1.0 MG PO QD
     Route: 048
     Dates: start: 20110318, end: 20110404
  4. CELEXA [Concomitant]
  5. LOMOTIL [Concomitant]
  6. XANAX [Concomitant]
  7. AMLODIPINE [Concomitant]

REACTIONS (1)
  - PLATELET DISORDER [None]
